FAERS Safety Report 22522218 (Version 1)
Quarter: 2023Q2

REPORT INFORMATION
  Report Type: Spontaneous
  Country: CL (occurrence: CL)
  Receive Date: 20230605
  Receipt Date: 20230605
  Transmission Date: 20230721
  Serious: Yes (Other)
  Sender: FDA-Public Use
  Company Number: CL-002147023-NVSC2023CL123196

PATIENT
  Sex: Female

DRUGS (1)
  1. CYCLOSPORINE [Suspect]
     Active Substance: CYCLOSPORINE
     Indication: Product used for unknown indication
     Dosage: UNK
     Route: 065

REACTIONS (7)
  - Quality of life decreased [Unknown]
  - Drug intolerance [Unknown]
  - Nervous system disorder [Unknown]
  - Gastrointestinal disorder [Unknown]
  - Urticaria chronic [Unknown]
  - Urticaria [Unknown]
  - Therapeutic response decreased [Unknown]
